FAERS Safety Report 7591945-2 (Version None)
Quarter: 2011Q3

REPORT INFORMATION
  Report Type: 
  Country: None (occurrence: None)
  Receive Date: 20110706
  Receipt Date: 20110630
  Transmission Date: 20111222
  Serious: Yes (Other)
  Sender: FDA-Public Use
  Company Number: US-B.I. PHARMACEUTICALS,INC./RIDGEFIELD-2011-BP-16735BP

PATIENT
  Age: 68 Year
  Sex: Male

DRUGS (2)
  1. PRADAXA [Suspect]
     Indication: ATRIAL FLUTTER
  2. CLASS III ANTIARRHYTHMICS [Concomitant]
     Indication: ATRIAL FLUTTER

REACTIONS (3)
  - CARDIAC PROCEDURE COMPLICATION [None]
  - RESPIRATORY ARREST [None]
  - CEREBROVASCULAR ACCIDENT [None]
